FAERS Safety Report 23015485 (Version 1)
Quarter: 2023Q4

REPORT INFORMATION
  Report Type: Spontaneous
  Country: US (occurrence: US)
  Receive Date: 20231002
  Receipt Date: 20231002
  Transmission Date: 20240109
  Serious: No
  Sender: FDA-Public Use
  Company Number: US-BAYER-2023A136882

PATIENT
  Age: 54 Year
  Sex: Female

DRUGS (1)
  1. GADAVIST [Suspect]
     Active Substance: GADOBUTROL
     Dosage: 9 ML, ONCE
     Dates: start: 20230811, end: 20230811

REACTIONS (1)
  - Urticaria [None]

NARRATIVE: CASE EVENT DATE: 20230811
